FAERS Safety Report 4316872-5 (Version None)
Quarter: 2004Q1

REPORT INFORMATION
  Report Type: 
  Country: None (occurrence: None)
  Receive Date: 20040311
  Receipt Date: 20040301
  Transmission Date: 20041129
  Serious: Yes (Death)
  Sender: FDA-Public Use
  Company Number: 200410140BNE

PATIENT
  Age: 18 Year
  Sex: Female

DRUGS (2)
  1. CIPROFLOXACIN [Suspect]
     Indication: URINARY TRACT INFECTION
     Dates: start: 20030907
  2. ERYTHROMYCIN [Concomitant]

REACTIONS (3)
  - BLOOD DISORDER [None]
  - MEDICATION ERROR [None]
  - POISONING [None]
